FAERS Safety Report 25272499 (Version 1)
Quarter: 2025Q2

REPORT INFORMATION
  Report Type: Spontaneous
  Country: CN (occurrence: CN)
  Receive Date: 20250506
  Receipt Date: 20250506
  Transmission Date: 20250717
  Serious: Yes (Other)
  Sender: ROCHE
  Company Number: CN-CHEPLA-2025005516

PATIENT
  Age: 72 Year
  Sex: Female
  Weight: 50 kg

DRUGS (3)
  1. BEVACIZUMAB [Suspect]
     Active Substance: BEVACIZUMAB
     Indication: Rectal cancer
     Dosage: APPROVAL NO. GYZZ S20200013
     Route: 042
     Dates: start: 20250318, end: 20250318
  2. CAPECITABINE [Suspect]
     Active Substance: CAPECITABINE
     Indication: Rectal cancer
     Dosage: 1.0G BID D1-14/ APPROVAL NO. GYZZ H20073024
     Route: 048
     Dates: start: 20250319, end: 20250401
  3. OXALIPLATIN [Suspect]
     Active Substance: OXALIPLATIN
     Indication: Rectal cancer
     Dosage: ROA: IV INFUSION 150MG [QD]/APPROVAL NO. GYZZ H20213312
     Route: 042
     Dates: start: 20250319, end: 20250319

REACTIONS (1)
  - Myelosuppression [Recovering/Resolving]

NARRATIVE: CASE EVENT DATE: 20250416
